FAERS Safety Report 18505056 (Version 1)
Quarter: 2020Q4

REPORT INFORMATION
  Report Type: Spontaneous
  Country: FR (occurrence: FR)
  Receive Date: 20201116
  Receipt Date: 20201116
  Transmission Date: 20210114
  Serious: No
  Sender: FDA-Public Use
  Company Number: FR-JNJFOC-20201114418

PATIENT
  Sex: Female

DRUGS (1)
  1. STELARA [Suspect]
     Active Substance: USTEKINUMAB
     Indication: PRODUCT USED FOR UNKNOWN INDICATION
     Route: 058

REACTIONS (6)
  - Fatigue [Unknown]
  - Hyperhidrosis [Unknown]
  - Nausea [Unknown]
  - Herpes zoster [Unknown]
  - Headache [Unknown]
  - Gamma-glutamyltransferase increased [Unknown]
